FAERS Safety Report 26078962 (Version 1)
Quarter: 2025Q4

REPORT INFORMATION
  Report Type: Spontaneous
  Country: US (occurrence: US)
  Receive Date: 20251123
  Receipt Date: 20251123
  Transmission Date: 20260118
  Serious: No
  Sender: DR REDDYS
  Company Number: US-DRL-USA-USA/2025/11/016787

PATIENT
  Age: 36 Year
  Sex: Female
  Weight: 113 kg

DRUGS (1)
  1. NICOTINE TRANSDERMAL SYSTEM STEP 2 [Suspect]
     Active Substance: NICOTINE
     Indication: Smoking cessation therapy
     Dosage: SERIAL NUMBER: 848985001502, PATCH ONCE DAILY
     Route: 062

REACTIONS (1)
  - Dizziness [Recovered/Resolved]
